FAERS Safety Report 6207107-7 (Version None)
Quarter: 2009Q2

REPORT INFORMATION
  Report Type: 
  Country: None (occurrence: None)
  Receive Date: 20090522
  Receipt Date: 20090303
  Transmission Date: 20091009
  Serious: Yes (Other)
  Sender: FDA-Public Use
  Company Number: 1000003358

PATIENT
  Age: 35 Year
  Sex: Female
  Weight: 123.8 kg

DRUGS (12)
  1. DINOPROSTONE (DINOPROSTONE) (10 MILLIGRAM, VAGINAL INSERT) [Suspect]
     Indication: LABOUR INDUCTION
     Dosage: 10 MG (10 MG, ONCE) , VAGINAL
     Route: 067
     Dates: start: 20081204, end: 20081201
  2. DINOPROSTONE (DINOPROSTONE) (10 MILLIGRAM, VAGINAL INSERT) [Suspect]
     Indication: LABOUR INDUCTION
     Dosage: 10 MG (10 MG, ONCE) , VAGINAL
     Route: 067
     Dates: start: 20081203, end: 20081203
  3. DINOPROSTONE (DINOPROSTONE) (10 MILLIGRAM, VAGINAL INSERT) [Suspect]
     Indication: LABOUR INDUCTION
     Dosage: 10 MG (10 MG, ONCE) , VAGINAL
     Route: 067
     Dates: start: 20081204, end: 20081204
  4. DINOPROSTONE (DINOPROSTONE) (10 MILLIGRAM, VAGINAL INSERT) [Suspect]
  5. BUTORPHANOL [Concomitant]
  6. HYDROXYZINE [Concomitant]
  7. NALBUPHINE [Concomitant]
  8. MISOPROSTOL [Concomitant]
  9. BISACODYL [Concomitant]
  10. OXYTOCIN [Concomitant]
  11. EPIDURAL ANESTHESIA [Concomitant]
  12. CLINDAMYCIN [Concomitant]

REACTIONS (1)
  - DRUG INEFFECTIVE [None]
